FAERS Safety Report 8025701-8 (Version None)
Quarter: 2012Q1

REPORT INFORMATION
  Report Type: 
  Country: None (occurrence: None)
  Receive Date: 20120105
  Receipt Date: 20111130
  Transmission Date: 20120608
  Serious: No
  Sender: FDA-Public Use
  Company Number: US-ABBOTT-09P-163-0575212-00

PATIENT
  Sex: Female
  Weight: 95.34 kg

DRUGS (5)
  1. LEVOTHYROXINE SODIUM [Concomitant]
     Indication: AUTOIMMUNE THYROIDITIS
     Dates: start: 20090401
  2. SYNTHROID [Suspect]
     Indication: AUTOIMMUNE THYROIDITIS
     Route: 048
     Dates: start: 19670101, end: 20090401
  3. COMPLETE VITAMIN B SUPPLEMENT [Concomitant]
     Indication: PRODUCT USED FOR UNKNOWN INDICATION
  4. ENZYME SUPPLEMENTS [Concomitant]
     Indication: PRODUCT USED FOR UNKNOWN INDICATION
     Route: 048
  5. FISH OIL [Concomitant]
     Indication: PRODUCT USED FOR UNKNOWN INDICATION

REACTIONS (12)
  - BURSITIS [None]
  - MADAROSIS [None]
  - DRUG INEFFECTIVE [None]
  - WEIGHT INCREASED [None]
  - NAIL RIDGING [None]
  - SKIN EXFOLIATION [None]
  - VISUAL IMPAIRMENT [None]
  - MYALGIA [None]
  - ALOPECIA [None]
  - ARTHRALGIA [None]
  - BODY HEIGHT DECREASED [None]
  - PARAESTHESIA [None]
